FAERS Safety Report 9244686 (Version 1)
Quarter: 2013Q2

REPORT INFORMATION
  Report Type: Report from Study
  Country: IN (occurrence: IN)
  Receive Date: 20130422
  Receipt Date: 20130422
  Transmission Date: 20140414
  Serious: Yes (Other)
  Sender: FDA-Public Use
  Company Number: IN-SANOFI-AVENTIS-2013SA040782

PATIENT
  Sex: 0

DRUGS (3)
  1. EPIRUBICIN [Suspect]
     Indication: GASTRIC CANCER
     Dosage: DAY 1
     Route: 065
  2. OXALIPLATIN [Suspect]
     Indication: GASTRIC CANCER
     Dosage: DAY 1
     Route: 065
  3. CAPECITABINE [Suspect]
     Indication: GASTRIC CANCER
     Dosage: TWICE DAILY DAYS 1 TO 14 OF EVERY CYCLE
     Route: 065

REACTIONS (1)
  - Palmar-plantar erythrodysaesthesia syndrome [Unknown]
